FAERS Safety Report 9263486 (Version 1)
Quarter: 2013Q2

REPORT INFORMATION
  Report Type: Report from Study
  Country: VE (occurrence: VE)
  Receive Date: 20130430
  Receipt Date: 20130430
  Transmission Date: 20140414
  Serious: Yes (Other)
  Sender: FDA-Public Use
  Company Number: VE-ABBOTT-13P-178-1081629-00

PATIENT
  Age: 63 Year
  Sex: Female
  Weight: 40.5 kg

DRUGS (2)
  1. HUMIRA [Suspect]
     Indication: RHEUMATOID ARTHRITIS
     Route: 058
     Dates: start: 20100601, end: 201203
  2. PREDNISONA [Concomitant]
     Indication: RHEUMATOID ARTHRITIS
     Dosage: 5 MG DAILY
     Route: 048

REACTIONS (4)
  - Pulmonary mass [Recovering/Resolving]
  - Tuberculin test positive [Unknown]
  - Back pain [Unknown]
  - Fatigue [Unknown]
